FAERS Safety Report 7110460-3 (Version None)
Quarter: 2010Q4

REPORT INFORMATION
  Report Type: 
  Country: None (occurrence: None)
  Receive Date: 20101116
  Receipt Date: 20101116
  Transmission Date: 20110411
  Serious: No
  Sender: FDA-Public Use
  Company Number: None

PATIENT
  Age: 57 Year
  Sex: Male
  Weight: 112 kg

DRUGS (10)
  1. PHENYTOIN [Suspect]
     Indication: EPILEPSY
     Dosage: 300 MG BID ORAL
     Route: 048
     Dates: start: 20100519, end: 20100527
  2. PHENYTOIN [Suspect]
  3. PHENYTOIN [Suspect]
  4. ZYLOPRIM [Concomitant]
  5. DILANTIN [Concomitant]
  6. FOLIC ACID [Concomitant]
  7. THIAMINE HCL [Concomitant]
  8. ATIVAN [Concomitant]
  9. BICODIN [Concomitant]
  10. PROTONIX [Concomitant]

REACTIONS (2)
  - DRUG LEVEL DECREASED [None]
  - PRODUCT QUALITY ISSUE [None]
